FAERS Safety Report 5701895-1 (Version None)
Quarter: 2008Q2

REPORT INFORMATION
  Report Type: 
  Country: None (occurrence: None)
  Receive Date: 20080411
  Receipt Date: 20080408
  Transmission Date: 20081010
  Serious: Yes (Other)
  Sender: FDA-Public Use
  Company Number: PHNU2008DE01493

PATIENT
  Sex: Male

DRUGS (1)
  1. LEPONEX [Suspect]
     Route: 048
     Dates: start: 20030101

REACTIONS (1)
  - NEPHROPATHY [None]
